FAERS Safety Report 11741744 (Version 1)
Quarter: 2015Q4

REPORT INFORMATION
  Report Type: Spontaneous
  Country: GR (occurrence: GR)
  Receive Date: 20151116
  Receipt Date: 20151116
  Transmission Date: 20160304
  Serious: Yes (Other)
  Sender: FDA-Public Use
  Company Number: GR-WATSON-2015-18749

PATIENT
  Age: 61 Year
  Sex: Male

DRUGS (2)
  1. RAPAFLO [Suspect]
     Active Substance: SILODOSIN
     Indication: BENIGN PROSTATIC HYPERPLASIA
     Dosage: 4 MG, DAILY
     Route: 048
     Dates: start: 20150729, end: 20150803
  2. KIOVIG [Concomitant]
     Active Substance: HUMAN IMMUNOGLOBULIN G
     Indication: NEUROMYOPATHY
     Dosage: 1 DOSE FORM, ONCE A MONTH
     Route: 030
     Dates: start: 2014

REACTIONS (3)
  - Amnesia [Unknown]
  - Road traffic accident [None]
  - Syncope [Recovered/Resolved]

NARRATIVE: CASE EVENT DATE: 20150803
